FAERS Safety Report 5196957-4 (Version None)
Quarter: 2006Q4

REPORT INFORMATION
  Report Type: 
  Country: None (occurrence: None)
  Receive Date: 20061227
  Receipt Date: 20061213
  Transmission Date: 20070319
  Serious: Yes (Other)
  Sender: FDA-Public Use
  Company Number: 2006153850

PATIENT
  Age: 65 Year
  Sex: Male

DRUGS (1)
  1. ZYVOX [Suspect]
     Indication: SEPSIS

REACTIONS (2)
  - JAUNDICE [None]
  - PANCYTOPENIA [None]
